FAERS Safety Report 7416326-3 (Version None)
Quarter: 2011Q2

REPORT INFORMATION
  Report Type: 
  Country: None (occurrence: None)
  Receive Date: 20110414
  Receipt Date: 20110412
  Transmission Date: 20111010
  Serious: Yes (Other)
  Sender: FDA-Public Use
  Company Number: US-PFIZER INC-2011080808

PATIENT

DRUGS (5)
  1. MULTI-VITAMINS [Concomitant]
     Indication: ALCOHOLISM
     Dosage: UNK
  2. NICOTINE [Concomitant]
     Indication: SMOKING CESSATION THERAPY
     Dosage: 21 MG, 1X/DAY
     Route: 062
  3. ACETAMINOPHEN [Concomitant]
     Indication: DISCOMFORT
     Dosage: 650 MG, 2-4 HOURS AS NEEDED
     Route: 048
  4. GEODON [Suspect]
     Dosage: 20 MG, 1X/DAY
     Route: 030
     Dates: start: 20110404
  5. AMBIEN [Concomitant]
     Indication: SLEEP DISORDER
     Dosage: 10 MG, THS

REACTIONS (1)
  - ANAPHYLACTIC REACTION [None]
